FAERS Safety Report 7995476-7 (Version None)
Quarter: 2011Q4

REPORT INFORMATION
  Report Type: 
  Country: None (occurrence: None)
  Receive Date: 20111220
  Receipt Date: 20111219
  Transmission Date: 20120403
  Serious: Yes (Life-Threatening, Hospitalization, Other)
  Sender: FDA-Public Use
  Company Number: JP-B.I. PHARMACEUTICALS,INC./RIDGEFIELD-2011-BP-24648NB

PATIENT
  Sex: Male

DRUGS (11)
  1. FAMOTIDINE D [Concomitant]
     Dosage: 20 MG
     Route: 048
  2. PURSENNID [Concomitant]
     Dosage: 24 MG
     Route: 048
  3. METFORMIN HCL [Concomitant]
     Dosage: 750 MG
     Route: 048
     Dates: end: 20111007
  4. NESINA [Suspect]
     Indication: DIABETES MELLITUS
     Dosage: 25 MG
     Route: 048
     Dates: start: 20110422, end: 20111007
  5. ETIZOLAM [Concomitant]
     Dosage: 0.5 MG
     Route: 048
     Dates: end: 20111008
  6. ALLOPURINOL [Concomitant]
     Dosage: 100 MG
     Route: 048
     Dates: end: 20111008
  7. PRADAXA [Suspect]
     Indication: ATRIAL FIBRILLATION
     Dosage: 220 MG
     Route: 048
     Dates: start: 20110422, end: 20111008
  8. OLMESARTAN MEDOXOMIL [Concomitant]
     Dosage: 10 MG
     Route: 048
     Dates: end: 20111008
  9. SM/TAKA-DIASTASE_NATURAL AG ENTS COMBINED DRUG [Concomitant]
     Dosage: 3.9 G
     Route: 048
  10. HARNAL D [Concomitant]
     Dosage: 0.1 MG
     Route: 048
     Dates: end: 20111006
  11. MAGNESIUM OXIDE [Concomitant]
     Dosage: 1 G
     Route: 048

REACTIONS (4)
  - CARDIAC FAILURE [None]
  - ORGANISING PNEUMONIA [None]
  - PLEURAL EFFUSION [None]
  - HAEMOPTYSIS [None]
